FAERS Safety Report 11347393 (Version 1)
Quarter: 2015Q3

REPORT INFORMATION
  Report Type: Spontaneous
  Country: US (occurrence: US)
  Receive Date: 20150803
  Receipt Date: 20150803
  Transmission Date: 20151125
  Serious: No
  Sender: FDA-Public Use
  Company Number: US-ELI_LILLY_AND_COMPANY-US201106000284

PATIENT
  Sex: Female

DRUGS (2)
  1. ZYPREXA [Suspect]
     Active Substance: OLANZAPINE
     Dosage: 7.5 MG, DAILY (1/D)
  2. ZYPREXA [Suspect]
     Active Substance: OLANZAPINE
     Dosage: 5 MG, DAILY (1/D)

REACTIONS (3)
  - Exposure during pregnancy [Recovered/Resolved]
  - Glucose tolerance impaired [Recovered/Resolved]
  - Blood glucose increased [Recovered/Resolved]
